FAERS Safety Report 5406002-0 (Version None)
Quarter: 2007Q3

REPORT INFORMATION
  Report Type: 
  Country: None (occurrence: None)
  Receive Date: 20070802
  Receipt Date: 20070719
  Transmission Date: 20080115
  Serious: Yes (Other)
  Sender: FDA-Public Use
  Company Number: ENT 2007-0081

PATIENT
  Age: 80 Year
  Sex: Female

DRUGS (2)
  1. COMTAN [Suspect]
     Indication: PARKINSON'S DISEASE
     Dosage: 200MG QD ORAL
     Route: 048
     Dates: start: 20070614, end: 20070615
  2. PROLOPA [Concomitant]

REACTIONS (2)
  - MUSCLE RIGIDITY [None]
  - PARALYSIS [None]
